FAERS Safety Report 17443792 (Version 1)
Quarter: 2020Q1

REPORT INFORMATION
  Report Type: Spontaneous
  Country: US (occurrence: US)
  Receive Date: 20200221
  Receipt Date: 20200221
  Transmission Date: 20200409
  Serious: No
  Sender: FDA-Public Use
  Company Number: NVSC2020US048743

PATIENT
  Age: 45 Year
  Sex: Female

DRUGS (1)
  1. TAFINLAR COMBO (DABRAFENIB\TRAMETINIB) [Suspect]
     Active Substance: DABRAFENIB\TRAMETINIB
     Indication: MALIGNANT MELANOMA STAGE IV
     Route: 065
     Dates: start: 20150401

REACTIONS (1)
  - Pyrexia [Recovered/Resolved]

NARRATIVE: CASE EVENT DATE: 20150401
